FAERS Safety Report 17702388 (Version 5)
Quarter: 2020Q3

REPORT INFORMATION
  Report Type: Report from Study
  Country: US (occurrence: US)
  Receive Date: 20200423
  Receipt Date: 20200819
  Transmission Date: 20201102
  Serious: Yes (Hospitalization)
  Sender: FDA-Public Use
  Company Number: US-EISAI MEDICAL RESEARCH-EC-2020-073502

PATIENT
  Age: 3 Year
  Sex: Female
  Weight: 15.7 kg

DRUGS (2)
  1. LENVATINIB [Suspect]
     Active Substance: LENVATINIB
     Indication: EWING^S SARCOMA
     Route: 048
     Dates: start: 20200406, end: 20200412
  2. EVEROLIMUS. [Suspect]
     Active Substance: EVEROLIMUS
     Indication: EWING^S SARCOMA
     Route: 048
     Dates: start: 20200406, end: 20200412

REACTIONS (1)
  - Hypophosphataemia [Not Recovered/Not Resolved]

NARRATIVE: CASE EVENT DATE: 20200413
